FAERS Safety Report 9302698 (Version 1)
Quarter: 2013Q2

REPORT INFORMATION
  Report Type: Spontaneous
  Country: US (occurrence: US)
  Receive Date: 20130522
  Receipt Date: 20130522
  Transmission Date: 20140414
  Serious: Yes (Other)
  Sender: FDA-Public Use
  Company Number: PHEH2013US010927

PATIENT
  Sex: Female

DRUGS (3)
  1. TEGRETOL [Suspect]
     Dosage: 200 MG, UNK
  2. TOPAMAX [Suspect]
     Dosage: 200 MG, BID
  3. CLONAZEPAM [Concomitant]
     Dosage: UNK UKN, UNK

REACTIONS (2)
  - Memory impairment [Unknown]
  - Convulsion [Unknown]
